FAERS Safety Report 5890316-4 (Version None)
Quarter: 2008Q3

REPORT INFORMATION
  Report Type: 
  Country: None (occurrence: None)
  Receive Date: 20080918
  Receipt Date: 20080903
  Transmission Date: 20090109
  Serious: Yes (Other)
  Sender: FDA-Public Use
  Company Number: DSU-2008-01133

PATIENT
  Age: 57 Year
  Sex: Female
  Weight: 84.369 kg

DRUGS (6)
  1. BENICAR [Suspect]
     Indication: HYPERTENSION
     Dosage: 20 MG (20 MG,QD), PER ORAL
     Route: 048
     Dates: start: 20080501, end: 20080719
  2. NEXIUM [Concomitant]
  3. ADVAIR (FLUTICASONE PROPIONATE, SALMETEROL XINAFOATE) (FLUTICASONE PRO [Concomitant]
  4. SINGULAIR (MONTELUKAST) (MONTELUKAST) [Concomitant]
  5. VESICARE (ANTICHOLINERGIC AGENTS) [Concomitant]
  6. VYTORIN (EZETIMIBE AND SIMVASTATIN) [Concomitant]

REACTIONS (5)
  - COUGH [None]
  - DRUG HYPERSENSITIVITY [None]
  - DYSPNOEA [None]
  - INSOMNIA [None]
  - PAIN [None]
